FAERS Safety Report 6618846-8 (Version None)
Quarter: 2010Q1

REPORT INFORMATION
  Report Type: 
  Country: None (occurrence: None)
  Receive Date: 20100302
  Receipt Date: 20100210
  Transmission Date: 20100710
  Serious: Yes (Other)
  Sender: FDA-Public Use
  Company Number: 2010S1000099-001

PATIENT
  Age: 61 Year
  Sex: Male

DRUGS (2)
  1. PITAVASTATIN [Suspect]
     Indication: DYSLIPIDAEMIA
     Dosage: 2MG PO
     Route: 048
     Dates: start: 20070901, end: 20100123
  2. MEQUITAZINE [Concomitant]

REACTIONS (1)
  - PLATELET COUNT DECREASED [None]
